FAERS Safety Report 6086856-8 (Version None)
Quarter: 2009Q1

REPORT INFORMATION
  Report Type: 
  Country: None (occurrence: None)
  Receive Date: 20090211
  Receipt Date: 20090128
  Transmission Date: 20090719
  Serious: Yes (Hospitalization, Other)
  Sender: FDA-Public Use
  Company Number: CHPA2009US00813

PATIENT
  Age: 57 Year
  Sex: Male

DRUGS (9)
  1. VOLTAREN [Suspect]
     Indication: NEUROPATHY PERIPHERAL
     Dosage: TOPICAL
     Route: 061
     Dates: start: 20090114, end: 20090114
  2. VOLTAREN [Suspect]
     Indication: PAIN
     Dosage: TOPICAL
     Route: 061
     Dates: start: 20090114, end: 20090114
  3. VOLTAREN [Suspect]
     Indication: NEUROPATHY PERIPHERAL
     Dosage: TOPICAL
     Route: 061
     Dates: start: 20090117, end: 20090117
  4. VOLTAREN [Suspect]
     Indication: PAIN
     Dosage: TOPICAL
     Route: 061
     Dates: start: 20090117, end: 20090117
  5. GLUCOPHAGE [Concomitant]
  6. SYNTHROID [Concomitant]
  7. ASPIRIN [Concomitant]
  8. DRUG THERAPY NOS (DRUG THERAPY NOS) [Concomitant]
  9. MULTIVITAMINS (ASCORBIC ACID, ERGOCALCIFEROL, FOLIC ACID, NICOTINAMIDE [Concomitant]

REACTIONS (9)
  - ABASIA [None]
  - BEDRIDDEN [None]
  - CONCOMITANT DISEASE PROGRESSION [None]
  - DRUG ADMINISTERED AT INAPPROPRIATE SITE [None]
  - HYPOAESTHESIA [None]
  - PARAESTHESIA [None]
  - TRANSIENT ISCHAEMIC ATTACK [None]
  - WHEELCHAIR USER [None]
  - WRONG TECHNIQUE IN DRUG USAGE PROCESS [None]
